FAERS Safety Report 18700614 (Version 22)
Quarter: 2025Q1

REPORT INFORMATION
  Report Type: Report from Study
  Country: CA (occurrence: CA)
  Receive Date: 20210105
  Receipt Date: 20250113
  Transmission Date: 20250408
  Serious: Yes (Hospitalization, Other)
  Sender: TAKEDA
  Company Number: CA-TAKEDA-2020TUS047907

PATIENT
  Age: 45 Year
  Sex: Female

DRUGS (13)
  1. VEDOLIZUMAB [Suspect]
     Active Substance: VEDOLIZUMAB
     Indication: Crohn^s disease
  2. VEDOLIZUMAB [Suspect]
     Active Substance: VEDOLIZUMAB
  3. VEDOLIZUMAB [Suspect]
     Active Substance: VEDOLIZUMAB
  4. VEDOLIZUMAB [Suspect]
     Active Substance: VEDOLIZUMAB
  5. VEDOLIZUMAB [Suspect]
     Active Substance: VEDOLIZUMAB
  6. VEDOLIZUMAB [Suspect]
     Active Substance: VEDOLIZUMAB
     Indication: Crohn^s disease
     Dosage: 108 MILLIGRAM, Q2WEEKS
     Dates: start: 20221209
  7. VEDOLIZUMAB [Suspect]
     Active Substance: VEDOLIZUMAB
     Dosage: 108 MILLIGRAM, Q2WEEKS
  8. VEDOLIZUMAB [Suspect]
     Active Substance: VEDOLIZUMAB
     Dosage: 108 MILLIGRAM, Q2WEEKS
  9. VEDOLIZUMAB [Suspect]
     Active Substance: VEDOLIZUMAB
     Dosage: 108 MILLIGRAM, Q2WEEKS
  10. VEDOLIZUMAB [Suspect]
     Active Substance: VEDOLIZUMAB
     Dosage: 108 MILLIGRAM, Q2WEEKS
  11. PANTOPRAZOLE SODIUM [Concomitant]
     Active Substance: PANTOPRAZOLE SODIUM
  12. VITAMIN B12 [Concomitant]
     Active Substance: CYANOCOBALAMIN
     Dosage: 1000 MILLIGRAM, QD
  13. MELATONIN [Concomitant]
     Active Substance: MELATONIN

REACTIONS (22)
  - Crohn^s disease [Unknown]
  - Malaise [Unknown]
  - Rectal haemorrhage [Unknown]
  - Impaired gastric emptying [Not Recovered/Not Resolved]
  - Intestinal mass [Not Recovered/Not Resolved]
  - Coeliac disease [Not Recovered/Not Resolved]
  - Intestinal polyp [Recovering/Resolving]
  - Drug ineffective [Recovering/Resolving]
  - Skin laceration [Unknown]
  - Abdominal discomfort [Unknown]
  - Diarrhoea [Unknown]
  - Lethargy [Unknown]
  - Sleep disorder [Unknown]
  - Pain [Unknown]
  - Product dose omission issue [Unknown]
  - Faeces hard [Recovered/Resolved]
  - Feeling abnormal [Unknown]
  - Gastrointestinal infection [Recovered/Resolved]
  - Abdominal pain [Recovered/Resolved]
  - Decreased appetite [Unknown]
  - Abdominal distension [Unknown]
  - Constipation [Recovered/Resolved]

NARRATIVE: CASE EVENT DATE: 20210719
